FAERS Safety Report 7994732-6 (Version None)
Quarter: 2011Q4

REPORT INFORMATION
  Report Type: 
  Country: None (occurrence: None)
  Receive Date: 20111220
  Receipt Date: 20111215
  Transmission Date: 20120403
  Serious: Yes (Death)
  Sender: FDA-Public Use
  Company Number: AR-SANOFI-AVENTIS-2011SA082558

PATIENT

DRUGS (1)
  1. TAXOTERE [Suspect]
     Route: 065
     Dates: start: 20110101, end: 20110101

REACTIONS (1)
  - DEATH [None]
